FAERS Safety Report 4650283-8 (Version None)
Quarter: 2005Q2

REPORT INFORMATION
  Report Type: 
  Country: None (occurrence: None)
  Receive Date: 20050428
  Receipt Date: 20050415
  Transmission Date: 20051028
  Serious: Yes (Hospitalization, Other)
  Sender: FDA-Public Use
  Company Number: KII-2005-0016120

PATIENT
  Age: 50 Year
  Sex: Female

DRUGS (1)
  1. OXYCONTIN [Suspect]
     Indication: PAIN
     Dosage: ORAL
     Route: 048

REACTIONS (7)
  - BLOOD GLUCOSE INCREASED [None]
  - BLOOD POTASSIUM DECREASED [None]
  - COMA [None]
  - FEELING HOT AND COLD [None]
  - INTENTIONAL MISUSE [None]
  - MIOSIS [None]
  - OXYGEN SATURATION DECREASED [None]
